FAERS Safety Report 10162962 (Version 1)
Quarter: 2014Q2

REPORT INFORMATION
  Report Type: Spontaneous
  Country: US (occurrence: US)
  Receive Date: 20140509
  Receipt Date: 20140509
  Transmission Date: 20141212
  Serious: No
  Sender: FDA-Public Use
  Company Number: US-PFIZER INC-2014125525

PATIENT
  Age: 63 Year
  Sex: Male
  Weight: 88.44 kg

DRUGS (3)
  1. TORISEL [Suspect]
     Indication: RENAL CELL CARCINOMA
     Dosage: 25 MG, WEEKLY
     Dates: start: 20131014, end: 20140407
  2. COREG [Concomitant]
     Indication: ATRIAL FIBRILLATION
     Dosage: ONE AND HALF TABLET, 2X/DAY
  3. WARFARIN [Concomitant]
     Dosage: ONE AND HALF TABLET, DAILY

REACTIONS (1)
  - Platelet count decreased [Unknown]
